FAERS Safety Report 4554299-1 (Version None)
Quarter: 2005Q1

REPORT INFORMATION
  Report Type: 
  Country: None (occurrence: None)
  Receive Date: 20050118
  Receipt Date: 20050103
  Transmission Date: 20050727
  Serious: Yes (Hospitalization)
  Sender: FDA-Public Use
  Company Number: DE-GLAXOSMITHKLINE-B0363150A

PATIENT
  Age: 73 Year
  Sex: Male
  Weight: 92 kg

DRUGS (4)
  1. TOPOTECAN HYDROCHLORIDE [Suspect]
     Indication: SMALL CELL LUNG CANCER STAGE UNSPECIFIED
     Dosage: 1MGM2 PER DAY
     Route: 042
     Dates: start: 20041220, end: 20041224
  2. CISPLATIN [Suspect]
     Indication: SMALL CELL LUNG CANCER STAGE UNSPECIFIED
     Dosage: 75MGM2 SINGLE DOSE
     Route: 042
     Dates: start: 20041224, end: 20041224
  3. DICLOFENAC [Concomitant]
     Indication: BONE PAIN
  4. CIPROFLOXACIN [Concomitant]
     Indication: PROPHYLAXIS

REACTIONS (8)
  - ANOREXIA [None]
  - BLOOD CREATININE INCREASED [None]
  - BLOOD POTASSIUM DECREASED [None]
  - DEHYDRATION [None]
  - DIARRHOEA [None]
  - ENTEROCOLITIS VIRAL [None]
  - HEPATIC ENZYME INCREASED [None]
  - NEUTROPENIA [None]
